FAERS Safety Report 11453837 (Version 1)
Quarter: 2015Q3

REPORT INFORMATION
  Report Type: Spontaneous
  Country: AT (occurrence: AT)
  Receive Date: 20150903
  Receipt Date: 20150903
  Transmission Date: 20151125
  Serious: Yes (Death, Hospitalization, Other)
  Sender: FDA-Public Use
  Company Number: AT-JNJFOC-20150710720

PATIENT
  Age: 75 Year
  Sex: Male

DRUGS (6)
  1. HYDAL [Concomitant]
     Active Substance: HYDROMORPHONE HYDROCHLORIDE
  2. IBRUTINIB [Suspect]
     Active Substance: IBRUTINIB
     Indication: CHRONIC LYMPHOCYTIC LEUKAEMIA
     Route: 048
     Dates: start: 20150618, end: 20150728
  3. PANTOLOC [Concomitant]
     Active Substance: PANTOPRAZOLE SODIUM
  4. METOHEXAL [Concomitant]
     Active Substance: METOPROLOL SUCCINATE
  5. MYCOSTATIN [Concomitant]
     Active Substance: NYSTATIN
  6. PRIVIGEN [Concomitant]
     Active Substance: HUMAN IMMUNOGLOBULIN G
     Route: 042

REACTIONS (2)
  - Stomatitis [Fatal]
  - Condition aggravated [Fatal]

NARRATIVE: CASE EVENT DATE: 2015
